FAERS Safety Report 9843543 (Version 1)
Quarter: 2013Q4

REPORT INFORMATION
  Report Type: Spontaneous
  Country: US (occurrence: None)
  Receive Date: 20131219
  Receipt Date: 20131219
  Transmission Date: 20140711
  Serious: Yes (Other)
  Sender: FDA-Public Use
  Company Number: 163-20785-12100817

PATIENT
  Age: 56 Year
  Sex: Female
  Weight: 133.81 kg

DRUGS (10)
  1. THALOMID (THALIDOMIDE) (50 MILLIGRAM, CAPSULES) [Suspect]
     Indication: PLASMA CELL MYELOMA
     Dosage: 50 MG, 1 IN 1 D, PO
     Route: 048
     Dates: start: 20120815
  2. CENTRUM SILVER (CENTRUM SILVER) [Concomitant]
  3. DEXAMETHASONE (DEXAMETHASONE) [Concomitant]
  4. GLIMEPIRIDE (GLIMEPIRIDE) [Concomitant]
  5. PREVACID (LANSOPRAZOLE) [Concomitant]
  6. SKELAXIN (METAXALONE) [Concomitant]
  7. ZOMETA (ZOLEDRONIC ACID) [Concomitant]
  8. FUROSEMIDE (FUROSEMIDE) [Concomitant]
  9. POTASSIUM CHLORIDE (POTASSIUM CHLORIDE) [Concomitant]
  10. NEUPOGEN (FILGRASTIM) [Concomitant]

REACTIONS (3)
  - Weight increased [None]
  - Skin papilloma [None]
  - Fatigue [None]
